FAERS Safety Report 4664627-4 (Version None)
Quarter: 2005Q2

REPORT INFORMATION
  Report Type: 
  Country: None (occurrence: None)
  Receive Date: 20050518
  Receipt Date: 20050113
  Transmission Date: 20051028
  Serious: Yes (Other)
  Sender: FDA-Public Use
  Company Number: DE-ROCHE-392305

PATIENT
  Sex: Female
  Weight: 0.3 kg

DRUGS (11)
  1. FUZEON [Suspect]
     Indication: HIV INFECTION
     Dates: start: 20031212
  2. NORVIR [Suspect]
     Indication: HIV INFECTION
     Dosage: DOSE REPORTED AS 200 PER DAY.
     Dates: start: 20031212, end: 20040708
  3. NORVIR [Suspect]
     Dates: start: 20040809
  4. TMC-114 [Suspect]
     Dates: start: 20031212, end: 20040728
  5. VIREAD [Suspect]
     Indication: HIV INFECTION
     Dosage: DOSE REPORTED AS 245 PER DAY.
     Dates: start: 20030103
  6. VIDEX [Suspect]
     Indication: HIV INFECTION
     Dosage: DOSE REPORTED AS 250 PER DAY.
     Dates: start: 20030103
  7. KALETRA [Suspect]
     Indication: HIV INFECTION
     Dosage: DOSE REPORTED AS 500 PER DAY.
     Dates: start: 20040809
  8. REYATAZ [Suspect]
     Indication: HIV INFECTION
     Dosage: DOSE REPORTED AS 300 PER DAY.
     Dates: start: 20040809
  9. LOPINAVIR [Suspect]
  10. METAMIZOL [Concomitant]
     Dates: end: 20040717
  11. DIHYDROCODEINE BITARTRATE INJ [Concomitant]

REACTIONS (13)
  - ABORTION INDUCED [None]
  - DRUG EXPOSURE DURING PREGNANCY [None]
  - FOETAL CEREBROVASCULAR DISORDER [None]
  - FOETAL DISORDER [None]
  - FOETAL GROWTH RETARDATION [None]
  - FOETAL HEART RATE ABNORMAL [None]
  - INJURY ASPHYXIATION [None]
  - INTRA-UTERINE DEATH [None]
  - PLACENTA PRAEVIA [None]
  - PLACENTAL DISORDER [None]
  - PLACENTAL INSUFFICIENCY [None]
  - PREGNANCY [None]
  - SKULL MALFORMATION [None]
